FAERS Safety Report 13758801 (Version 1)
Quarter: 2017Q3

REPORT INFORMATION
  Report Type: Spontaneous
  Country: US (occurrence: US)
  Receive Date: 20170717
  Receipt Date: 20170717
  Transmission Date: 20171127
  Serious: Yes (Death)
  Sender: FDA-Public Use
  Company Number: PHEH2017US021712

PATIENT
  Age: 57 Year
  Sex: Male

DRUGS (1)
  1. HYCAMTIN [Suspect]
     Active Substance: TOPOTECAN HYDROCHLORIDE
     Indication: NEOPLASM MALIGNANT
     Dosage: 1 MG, QD
     Route: 048
     Dates: start: 20170512

REACTIONS (1)
  - Death [Fatal]

NARRATIVE: CASE EVENT DATE: 20170708
